FAERS Safety Report 25490773 (Version 2)
Quarter: 2025Q3

REPORT INFORMATION
  Report Type: Spontaneous
  Country: CA (occurrence: CA)
  Receive Date: 20250627
  Receipt Date: 20250804
  Transmission Date: 20251020
  Serious: Yes (Life-Threatening, Hospitalization, Other)
  Sender: SANOFI AVENTIS
  Company Number: CA-SA-2025SA176431

PATIENT
  Age: 65 Year
  Sex: Female
  Weight: 69 kg

DRUGS (15)
  1. GLUCOPHAGE [Suspect]
     Active Substance: METFORMIN HYDROCHLORIDE
     Indication: Product used for unknown indication
     Dosage: 850 MG, Q8H
     Route: 048
  2. IRBESARTAN [Suspect]
     Active Substance: IRBESARTAN
     Indication: Hypertension
     Dosage: 300 MG, QD
     Route: 048
  3. IRBESARTAN [Suspect]
     Active Substance: IRBESARTAN
     Dosage: 300 MG, QD
     Route: 048
  4. ACETAMINOPHEN [Suspect]
     Active Substance: ACETAMINOPHEN
     Dosage: 650 MG, QD
     Route: 048
  5. ALTACE [Suspect]
     Active Substance: RAMIPRIL
     Route: 048
  6. AMLODIPINE [Suspect]
     Active Substance: AMLODIPINE BESYLATE
     Dosage: 5 MG, QD
     Route: 048
  7. AMLODIPINE BESYLATE [Suspect]
     Active Substance: AMLODIPINE BESYLATE
  8. BISOPROLOL FUMARATE [Suspect]
     Active Substance: BISOPROLOL FUMARATE
  9. CALCIUM CARBONATE\CHOLECALCIFEROL [Suspect]
     Active Substance: CALCIUM CARBONATE\CHOLECALCIFEROL
     Dosage: 20 MG, QD
     Route: 048
  10. CANDESARTAN [Suspect]
     Active Substance: CANDESARTAN
     Indication: Hypertension
     Dosage: 150 MG, QD
     Route: 048
  11. METHOTREXATE [Suspect]
     Active Substance: METHOTREXATE
  12. MORPHINE [Suspect]
     Active Substance: MORPHINE
     Route: 030
  13. ONDANSETRON [Suspect]
     Active Substance: ONDANSETRON
  14. PREDNISONE [Suspect]
     Active Substance: PREDNISONE
  15. PROCHLORPERAZINE [Suspect]
     Active Substance: PROCHLORPERAZINE
     Indication: Vomiting

REACTIONS (11)
  - Angina pectoris [Not Recovered/Not Resolved]
  - Carotid artery thrombosis [Recovered/Resolved]
  - Cataract [Not Recovered/Not Resolved]
  - Cerebrovascular accident [Recovered/Resolved]
  - Gangrene [Not Recovered/Not Resolved]
  - Hemiparesis [Recovered/Resolved]
  - Hemiplegia [Recovered/Resolved]
  - Influenza [Not Recovered/Not Resolved]
  - Pneumonia [Not Recovered/Not Resolved]
  - Rheumatoid arthritis [Not Recovered/Not Resolved]
  - Product use issue [Not Recovered/Not Resolved]
